FAERS Safety Report 7685569-6 (Version None)
Quarter: 2011Q3

REPORT INFORMATION
  Report Type: 
  Country: None (occurrence: None)
  Receive Date: 20110815
  Receipt Date: 20110815
  Transmission Date: 20111222
  Serious: Yes (Hospitalization)
  Sender: FDA-Public Use
  Company Number: None

PATIENT
  Age: 47 Year
  Sex: Female
  Weight: 114.76 kg

DRUGS (1)
  1. SPIRONOLACTONE [Suspect]
     Dates: start: 20090423, end: 20110718

REACTIONS (1)
  - RENAL FAILURE ACUTE [None]
